FAERS Safety Report 13289044 (Version 3)
Quarter: 2017Q2

REPORT INFORMATION
  Report Type: Spontaneous
  Country: GB (occurrence: GB)
  Receive Date: 20170302
  Receipt Date: 20170410
  Transmission Date: 20170830
  Serious: Yes (Hospitalization)
  Sender: FDA-Public Use
  Company Number: GB-AMGEN-GBRSP2016186147

PATIENT
  Age: 57 Year
  Sex: Female

DRUGS (1)
  1. ENBREL [Suspect]
     Active Substance: ETANERCEPT
     Indication: PRODUCT USED FOR UNKNOWN INDICATION
     Dosage: 50 MG, UNK
     Route: 058
     Dates: end: 201610

REACTIONS (5)
  - Speech disorder [Unknown]
  - Dizziness [Unknown]
  - Malaise [Unknown]
  - Anxiety [Unknown]
  - Mobility decreased [Unknown]

NARRATIVE: CASE EVENT DATE: 201610
